FAERS Safety Report 4893864-9 (Version None)
Quarter: 2006Q1

REPORT INFORMATION
  Report Type: 
  Country: None (occurrence: None)
  Receive Date: 20060127
  Receipt Date: 20041229
  Transmission Date: 20060701
  Serious: No
  Sender: FDA-Public Use
  Company Number: 2004/05341

PATIENT

DRUGS (1)
  1. BUPROPION [Suspect]
     Indication: DRUG USE FOR UNKNOWN INDICATION
     Dosage: 150MG UNKNOWN
     Route: 048

REACTIONS (2)
  - CHROMATURIA [None]
  - PHARMACEUTICAL PRODUCT COMPLAINT [None]
